FAERS Safety Report 24676072 (Version 1)
Quarter: 2024Q4

REPORT INFORMATION
  Report Type: Spontaneous
  Country: US (occurrence: US)
  Receive Date: 20241128
  Receipt Date: 20241128
  Transmission Date: 20250115
  Serious: No
  Sender: ALEXION PHARMACEUTICALS
  Company Number: US-009507513-2410USA013116

PATIENT

DRUGS (7)
  1. LYNPARZA [Suspect]
     Active Substance: OLAPARIB
     Dosage: UNK
  2. LYNPARZA [Suspect]
     Active Substance: OLAPARIB
     Dosage: UNK
  3. ZYTIGA [Concomitant]
     Active Substance: ABIRATERONE ACETATE
     Indication: Prostate cancer
     Dosage: UNK
  4. ZYTIGA [Concomitant]
     Active Substance: ABIRATERONE ACETATE
     Dosage: UNK
  5. PREDNISONE [Concomitant]
     Active Substance: PREDNISONE
     Indication: Prostate cancer
     Dosage: UNK
  6. PREDNISONE [Concomitant]
     Active Substance: PREDNISONE
     Dosage: UNK
  7. LUPRON [Concomitant]
     Active Substance: LEUPROLIDE ACETATE
     Indication: Prostate cancer
     Dosage: UNK

REACTIONS (7)
  - Mental disorder [Unknown]
  - Hot flush [Recovered/Resolved]
  - Fluid retention [Recovered/Resolved]
  - Hypogeusia [Recovered/Resolved]
  - Fatigue [Recovered/Resolved]
  - Joint stiffness [Recovered/Resolved]
  - Blood testosterone decreased [Unknown]
